FAERS Safety Report 9415024 (Version 1)
Quarter: 2013Q3

REPORT INFORMATION
  Report Type: Spontaneous
  Country: BR (occurrence: BR)
  Receive Date: 20130723
  Receipt Date: 20130723
  Transmission Date: 20140515
  Serious: Yes (Death, Hospitalization)
  Sender: FDA-Public Use
  Company Number: BR-JNJFOC-20130712062

PATIENT
  Age: 47 Year
  Sex: Female
  Weight: 73 kg

DRUGS (12)
  1. REMICADE [Suspect]
     Indication: POLYCHONDRITIS
     Route: 042
     Dates: start: 20130513
  2. REMICADE [Suspect]
     Indication: POLYCHONDRITIS
     Route: 042
     Dates: start: 2007
  3. REMICADE [Suspect]
     Indication: RHEUMATOID ARTHRITIS
     Route: 042
     Dates: start: 20130513
  4. REMICADE [Suspect]
     Indication: RHEUMATOID ARTHRITIS
     Route: 042
     Dates: start: 2007
  5. METHOTREXATE [Concomitant]
     Indication: POLYCHONDRITIS
     Route: 065
     Dates: start: 2007
  6. FOLIC ACID [Concomitant]
     Route: 065
  7. OMEPRAZOLE [Concomitant]
     Route: 065
  8. CALCIUM [Concomitant]
     Route: 065
  9. ALENDRONATE [Concomitant]
     Route: 065
  10. AMLODIPINE [Concomitant]
     Route: 065
  11. ATENOLOL [Concomitant]
     Route: 065
  12. PREDNISONE [Concomitant]
     Route: 065

REACTIONS (5)
  - Coagulopathy [Fatal]
  - Polychondritis [Fatal]
  - Pneumonia [Fatal]
  - Hypertension [Fatal]
  - Off label use [Unknown]
